FAERS Safety Report 8693567 (Version 3)
Quarter: 2013Q2

REPORT INFORMATION
  Report Type: Spontaneous
  Country: TR (occurrence: TR)
  Receive Date: 20120731
  Receipt Date: 20130503
  Transmission Date: 20140414
  Serious: Yes (Other)
  Sender: FDA-Public Use
  Company Number: TR-AMGEN-TURSP2012045464

PATIENT
  Age: 51 Year
  Sex: Female

DRUGS (4)
  1. ENBREL [Suspect]
     Indication: ANKYLOSING SPONDYLITIS
     Dosage: 50 MG, WEEKLY
     Route: 058
     Dates: start: 20120124
  2. ENBREL [Suspect]
     Dosage: 50 MG, QWK
     Dates: start: 20130421
  3. METHOTREXATE SODIUM [Suspect]
     Indication: OEDEMA PERIPHERAL
     Dosage: UNK
  4. METHOTREXATE SODIUM [Suspect]
     Indication: OEDEMA PERIPHERAL

REACTIONS (5)
  - Oedema peripheral [Not Recovered/Not Resolved]
  - Hepatic enzyme increased [Recovered/Resolved]
  - Umbilical hernia [Not Recovered/Not Resolved]
  - Incision site oedema [Not Recovered/Not Resolved]
  - Urinary tract infection [Unknown]
